FAERS Safety Report 24757998 (Version 1)
Quarter: 2024Q4

REPORT INFORMATION
  Report Type: Spontaneous
  Country: US (occurrence: US)
  Receive Date: 20241220
  Receipt Date: 20241220
  Transmission Date: 20250114
  Serious: Yes (Hospitalization, Disabling)
  Sender: STRIDES
  Company Number: US-STRIDES ARCOLAB LIMITED-2024SP016762

PATIENT

DRUGS (5)
  1. IBUPROFEN [Suspect]
     Active Substance: IBUPROFEN
     Indication: Toxic shock syndrome streptococcal
     Dosage: UNK
     Route: 065
  2. CLINDAMYCIN [Suspect]
     Active Substance: CLINDAMYCIN
     Indication: Toxic shock syndrome streptococcal
     Dosage: 800 MILLIGRAM, EVERY 8 HOURS (SCHEDULED FOR 14 DAYS COURSE) (TO COMPLETE A 14?DAY COURSE)
     Route: 065
  3. PENICILLIN G [Suspect]
     Active Substance: PENICILLIN G
     Indication: Toxic shock syndrome streptococcal
     Dosage: UNK, EVERY 12 HRS (DOSAGE: 12MILLION UNITS) (TO COMPLETE A 14?DAY COURSE)
     Route: 065
  4. HUMAN IMMUNOGLOBULIN G [Suspect]
     Active Substance: HUMAN IMMUNOGLOBULIN G
     Indication: Toxic shock syndrome streptococcal
     Dosage: UNK (DOSAGE: 1G/KG ONCE)
     Route: 042
  5. HUMAN IMMUNOGLOBULIN G [Suspect]
     Active Substance: HUMAN IMMUNOGLOBULIN G
     Dosage: 500 MILLIGRAM/KILOGRAM, QD, (SCHEDULED FOR 3 DAYS)
     Route: 042

REACTIONS (2)
  - Eschar [Recovered/Resolved]
  - Drug ineffective for unapproved indication [Unknown]
